FAERS Safety Report 7676883-9 (Version None)
Quarter: 2011Q3

REPORT INFORMATION
  Report Type: 
  Country: None (occurrence: None)
  Receive Date: 20110811
  Receipt Date: 20110728
  Transmission Date: 20111222
  Serious: Yes (Hospitalization, Other)
  Sender: FDA-Public Use
  Company Number: PHFR2007GB02094

PATIENT
  Sex: Male

DRUGS (10)
  1. CLOZAPINE [Suspect]
     Indication: SCHIZOPHRENIA
     Dosage: 350 MG
     Route: 048
     Dates: start: 20070301
  2. EYE DROPS [Concomitant]
  3. CLOZAPINE [Suspect]
     Dosage: 350 MG, QD
     Route: 048
     Dates: start: 20070404, end: 20080409
  4. CLOZAPINE [Suspect]
     Dosage: 350 MG
     Route: 048
     Dates: end: 20090201
  5. PERINDOPRIL [Concomitant]
     Route: 065
  6. LORAZEPAM [Concomitant]
     Indication: CATATONIA
     Dosage: 500 MCG/DAY
     Route: 048
     Dates: start: 20070201
  7. NEUPOGEN [Concomitant]
     Route: 065
  8. CLOZAPINE [Suspect]
     Route: 065
  9. CLOZAPINE [Suspect]
     Route: 048
     Dates: start: 20110506
  10. CETIRIZINE HCL [Concomitant]
     Indication: ECZEMA
     Dosage: 10 MG/DAY
     Route: 048
     Dates: start: 20070101

REACTIONS (16)
  - SLEEP APNOEA SYNDROME [None]
  - PLATELET COUNT DECREASED [None]
  - LYMPHADENOPATHY [None]
  - PERSECUTORY DELUSION [None]
  - NEUTROPENIA [None]
  - WEIGHT INCREASED [None]
  - NEUTROPHIL COUNT DECREASED [None]
  - PNEUMONIA [None]
  - AGRANULOCYTOSIS [None]
  - FATIGUE [None]
  - HAEMOGLOBIN DECREASED [None]
  - EYE INFECTION [None]
  - BLOOD PRESSURE INCREASED [None]
  - NIGHT SWEATS [None]
  - HODGKIN'S DISEASE LYMPHOCYTE PREDOMINANCE TYPE STAGE UNSPECIFIED [None]
  - WHITE BLOOD CELL COUNT DECREASED [None]
